FAERS Safety Report 8621982-8 (Version None)
Quarter: 2012Q3

REPORT INFORMATION
  Report Type: 
  Country: None (occurrence: None)
  Receive Date: 20120823
  Receipt Date: 20120823
  Transmission Date: 20120928
  Serious: Yes (Other)
  Sender: FDA-Public Use
  Company Number: None

PATIENT
  Age: 53 Year
  Sex: Male
  Weight: 98.3 kg

DRUGS (1)
  1. BRILINTA [Suspect]
     Dosage: 180MG ONCE PO
     Route: 048

REACTIONS (4)
  - BUNDLE BRANCH BLOCK [None]
  - HYPOTENSION [None]
  - ATRIOVENTRICULAR BLOCK FIRST DEGREE [None]
  - SYNCOPE [None]
